FAERS Safety Report 14068374 (Version 1)
Quarter: 2017Q4

REPORT INFORMATION
  Report Type: Report from Study
  Country: CO (occurrence: CO)
  Receive Date: 20171010
  Receipt Date: 20171010
  Transmission Date: 20180321
  Serious: Yes (Other)
  Sender: FDA-Public Use
  Company Number: CO-REGENERON PHARMACEUTICALS, INC.-2017-23611

PATIENT

DRUGS (1)
  1. EYLEA [Suspect]
     Active Substance: AFLIBERCEPT
     Indication: RETINAL VEIN OCCLUSION
     Dosage: 2.0 MG, Q1MON
     Dates: start: 20140925

REACTIONS (2)
  - Laser therapy [Unknown]
  - Intraocular lens implant [Recovering/Resolving]

NARRATIVE: CASE EVENT DATE: 201708
